FAERS Safety Report 13895064 (Version 1)
Quarter: 2017Q3

REPORT INFORMATION
  Report Type: Spontaneous
  Country: US (occurrence: None)
  Receive Date: 20170822
  Receipt Date: 20170822
  Transmission Date: 20171127
  Serious: No
  Sender: FDA-Public Use
  Company Number: None

PATIENT
  Age: 79 Year
  Sex: Female

DRUGS (1)
  1. NEUPOGEN [Suspect]
     Active Substance: FILGRASTIM
     Indication: LUNG NEOPLASM MALIGNANT
     Dosage: FREQUENCY - DAILY FOR 4 DAYS STARTING 24 HOURS AFTER CHEMOTHERAPY
     Route: 058
     Dates: start: 20170810

REACTIONS (4)
  - Injection site discomfort [None]
  - Syringe issue [None]
  - Inappropriate schedule of drug administration [None]
  - Product availability issue [None]

NARRATIVE: CASE EVENT DATE: 20170811
